FAERS Safety Report 16431443 (Version 2)
Quarter: 2019Q2

REPORT INFORMATION
  Report Type: Spontaneous
  Country: US (occurrence: US)
  Receive Date: 20190614
  Receipt Date: 20190625
  Transmission Date: 20190711
  Serious: Yes (Hospitalization)
  Sender: FDA-Public Use
  Company Number: US-AMGEN-USASP2019092792

PATIENT
  Age: 10 Year
  Sex: Male
  Weight: 34 kg

DRUGS (1)
  1. BLINCYTO [Suspect]
     Active Substance: BLINATUMOMAB
     Indication: TRANSPLANT
     Dosage: 17.5 MICROGRAM, QD
     Route: 065
     Dates: start: 20190503

REACTIONS (1)
  - Device leakage [Recovered/Resolved]

NARRATIVE: CASE EVENT DATE: 20190518
